FAERS Safety Report 26202289 (Version 1)
Quarter: 2025Q4

REPORT INFORMATION
  Report Type: Spontaneous
  Country: US (occurrence: US)
  Receive Date: 20251226
  Receipt Date: 20251226
  Transmission Date: 20260117
  Serious: Yes (Other)
  Sender: BAXTER
  Company Number: US-BAXTER-2025BAX026283

PATIENT
  Age: 73 Year
  Sex: Female

DRUGS (2)
  1. CEFAZOLIN [Suspect]
     Active Substance: CEFAZOLIN
     Indication: Escherichia bacteraemia
     Dosage: UNK
     Route: 065
  2. CEFTRIAXONE [Concomitant]
     Active Substance: CEFTRIAXONE
     Indication: Escherichia bacteraemia
     Dosage: UNK
     Route: 065

REACTIONS (5)
  - Coagulopathy [Unknown]
  - Clostridium difficile colitis [Unknown]
  - Haematochezia [Unknown]
  - Haemoglobin decreased [Unknown]
  - International normalised ratio increased [Unknown]
